FAERS Safety Report 18304885 (Version 1)
Quarter: 2020Q3

REPORT INFORMATION
  Report Type: Spontaneous
  Country: US (occurrence: US)
  Receive Date: 20200923
  Receipt Date: 20200923
  Transmission Date: 20201103
  Serious: No
  Sender: FDA-Public Use
  Company Number: US-PFIZER INC-2020330492

PATIENT
  Age: 52 Year
  Sex: Female

DRUGS (1)
  1. LYRICA [Suspect]
     Active Substance: PREGABALIN
     Dosage: 225 MG, 3X/DAY, (SIG: 1 CAPSULE ORALLY TID FOR 30 DAYS)
     Route: 048

REACTIONS (2)
  - Pain [Unknown]
  - Prescribed overdose [Unknown]
